FAERS Safety Report 8871572 (Version 2)
Quarter: 2013Q2

REPORT INFORMATION
  Report Type: Spontaneous
  Country: US (occurrence: None)
  Receive Date: 20120426
  Receipt Date: 20120703
  Transmission Date: 20140414
  Serious: Yes (Other)
  Sender: FDA-Public Use
  Company Number: PHEH2012US004787

PATIENT
  Age: 37 Year
  Sex: Female

DRUGS (1)
  1. GILENYA [Suspect]
     Indication: MULTIPLE SCLEROSIS
     Route: 048
     Dates: start: 201102, end: 20120312

REACTIONS (4)
  - White blood cell count decreased [None]
  - Lymphocyte count decreased [None]
  - Neutrophil percentage increased [None]
  - Monocyte percentage increased [None]
